FAERS Safety Report 9308237 (Version 2)
Quarter: 2013Q2

REPORT INFORMATION
  Report Type: Spontaneous
  Country: DE (occurrence: DE)
  Receive Date: 20130524
  Receipt Date: 20130604
  Transmission Date: 20140414
  Serious: Yes (Other)
  Sender: FDA-Public Use
  Company Number: DE-PFIZER INC-2013108952

PATIENT
  Age: 24 Year
  Sex: Male
  Weight: 65 kg

DRUGS (2)
  1. TREVILOR RETARD [Suspect]
     Indication: SUICIDE ATTEMPT
     Dosage: 37.5 MG, 2X/DAY
     Dates: start: 20130212, end: 20130215
  2. TREVILOR RETARD [Suspect]
     Dosage: 75 MG, UNK
     Dates: start: 20130216, end: 20130402

REACTIONS (9)
  - Rhabdomyolysis [Unknown]
  - Blood creatine phosphokinase increased [Recovered/Resolved]
  - Transaminases increased [Recovered/Resolved]
  - Blood lactate dehydrogenase increased [Unknown]
  - Fall [Unknown]
  - Contusion [Unknown]
  - Food poisoning [Unknown]
  - Vomiting [Recovered/Resolved]
  - Off label use [Recovered/Resolved]
